FAERS Safety Report 4991241-3 (Version None)
Quarter: 2006Q2

REPORT INFORMATION
  Report Type: 
  Country: None (occurrence: None)
  Receive Date: 20060428
  Receipt Date: 20060411
  Transmission Date: 20061013
  Serious: Yes (Other)
  Sender: FDA-Public Use
  Company Number: US200603007274

PATIENT
  Age: 70 Year
  Sex: Female
  Weight: 71.2 kg

DRUGS (11)
  1. FORTEO [Suspect]
     Indication: OSTEOPOROSIS
     Dates: start: 20051101
  2. FORTEO PEN (FORTEO PEN) PEN, DISPOSABLE [Concomitant]
  3. ACTONEL [Concomitant]
  4. LESCOL [Concomitant]
  5. DIAZEPAM [Concomitant]
  6. PRILOSEC [Concomitant]
  7. ATENOLOL [Concomitant]
  8. HYDROCHLOROTHIAZIDE [Concomitant]
  9. K-DUR 10 [Concomitant]
  10. ARICEPT [Concomitant]
  11. TALWIN NX (NALOXONE HYDROCHLORIDE, PENTAZOCINE HYDROCHLORIDE) [Concomitant]

REACTIONS (6)
  - DIZZINESS [None]
  - FALL [None]
  - FRACTURED SACRUM [None]
  - PELVIC FRACTURE [None]
  - PHARMACEUTICAL PRODUCT COMPLAINT [None]
  - RIB FRACTURE [None]
